FAERS Safety Report 24243048 (Version 2)
Quarter: 2024Q3

REPORT INFORMATION
  Report Type: Report from Study
  Country: CR (occurrence: CR)
  Receive Date: 20240823
  Receipt Date: 20240906
  Transmission Date: 20241016
  Serious: Yes (Disabling, Other)
  Sender: NOVARTIS
  Company Number: CR-002147023-NVSC2024CR168677

PATIENT
  Age: 41 Year
  Sex: Male
  Weight: 68 kg

DRUGS (2)
  1. SECUKINUMAB [Suspect]
     Active Substance: SECUKINUMAB
     Indication: Ankylosing spondylitis
     Dosage: 150 MG, QMO
     Route: 058
     Dates: start: 20220914
  2. SECUKINUMAB [Suspect]
     Active Substance: SECUKINUMAB
     Dosage: UNK
     Route: 065
     Dates: start: 20240830

REACTIONS (14)
  - Dengue fever [Recovered/Resolved with Sequelae]
  - Neutrophil count decreased [Unknown]
  - Haemoglobinuria [Unknown]
  - Thrombocytopenia [Unknown]
  - Leukopenia [Unknown]
  - Ill-defined disorder [Unknown]
  - Mean cell haemoglobin concentration increased [Unknown]
  - Monocyte count abnormal [Unknown]
  - Eosinophil count abnormal [Unknown]
  - Basophil count abnormal [Unknown]
  - Proteinuria [Unknown]
  - White blood cell disorder [Unknown]
  - Red blood cell abnormality [Unknown]
  - Lymphocyte count abnormal [Unknown]

NARRATIVE: CASE EVENT DATE: 20240808
